FAERS Safety Report 8513958 (Version 4)
Quarter: 2014Q1

REPORT INFORMATION
  Report Type: Spontaneous
  Country: FR (occurrence: FR)
  Receive Date: 20120416
  Receipt Date: 20140327
  Transmission Date: 20141002
  Serious: Yes (Hospitalization, Other)
  Sender: FDA-Public Use
  Company Number: FR-ROCHE-1057596

PATIENT
  Age: 58 Year
  Sex: Female

DRUGS (20)
  1. MABTHERA [Suspect]
     Indication: RHEUMATOID ARTHRITIS
     Route: 065
     Dates: start: 20091001, end: 201110
  2. ETANERCEPT [Suspect]
     Indication: RHEUMATOID ARTHRITIS
     Route: 058
     Dates: start: 20111018, end: 20120303
  3. METOJECT [Suspect]
     Indication: RHEUMATOID ARTHRITIS
     Route: 058
     Dates: start: 19970101, end: 20120315
  4. LYRICA [Suspect]
     Indication: PAIN
     Route: 048
     Dates: start: 2010, end: 20120315
  5. ACTONEL [Suspect]
     Indication: PRODUCT USED FOR UNKNOWN INDICATION
     Route: 065
     Dates: start: 2010, end: 20120315
  6. INEXIUM [Suspect]
     Indication: PRODUCT USED FOR UNKNOWN INDICATION
     Route: 065
     Dates: start: 2010, end: 20120315
  7. LAROXYL [Suspect]
     Indication: DEPRESSION
     Dosage: 40MG/ML
     Route: 048
     Dates: end: 20120303
  8. SEROPLEX [Concomitant]
     Indication: DEPRESSION
     Route: 065
     Dates: start: 20120302, end: 20120315
  9. SEROPLEX [Concomitant]
     Route: 065
     Dates: start: 20120317
  10. NISIS [Concomitant]
     Indication: PRODUCT USED FOR UNKNOWN INDICATION
  11. FLODIL (FRANCE) [Concomitant]
     Indication: PRODUCT USED FOR UNKNOWN INDICATION
  12. XANAX [Concomitant]
     Indication: PRODUCT USED FOR UNKNOWN INDICATION
     Route: 065
     Dates: start: 20120302, end: 20120315
  13. XANAX [Concomitant]
     Route: 065
     Dates: start: 20120317
  14. STILNOX [Concomitant]
     Indication: PRODUCT USED FOR UNKNOWN INDICATION
  15. CORTANCYL [Concomitant]
     Indication: PRODUCT USED FOR UNKNOWN INDICATION
  16. SPECIAFOLDINE [Concomitant]
     Indication: PRODUCT USED FOR UNKNOWN INDICATION
  17. DAFALGAN [Concomitant]
     Indication: PRODUCT USED FOR UNKNOWN INDICATION
  18. SULFARLEM [Concomitant]
     Indication: PRODUCT USED FOR UNKNOWN INDICATION
  19. VOLTAREN EMULGEL [Concomitant]
     Indication: PRODUCT USED FOR UNKNOWN INDICATION
  20. ESCITALOPRAM [Concomitant]
     Route: 065
     Dates: start: 20120302, end: 20120315

REACTIONS (6)
  - Agranulocytosis [Recovered/Resolved]
  - Bone marrow failure [Recovered/Resolved]
  - Oedema peripheral [Recovered/Resolved]
  - Asthenia [Recovered/Resolved]
  - Headache [Recovered/Resolved]
  - Chills [Recovered/Resolved]
